FAERS Safety Report 6959251-4 (Version None)
Quarter: 2010Q3

REPORT INFORMATION
  Report Type: 
  Country: None (occurrence: None)
  Receive Date: 20100831
  Receipt Date: 20100820
  Transmission Date: 20110219
  Serious: Yes (Other)
  Sender: FDA-Public Use
  Company Number: US-PFIZER INC-2010105311

PATIENT
  Age: 72 Year
  Sex: Male

DRUGS (4)
  1. DOXORUBICIN HCL [Suspect]
     Indication: LUNG SQUAMOUS CELL CARCINOMA STAGE UNSPECIFIED
     Dosage: 40 MG/M2, UNK
  2. CISPLATIN [Suspect]
     Indication: LUNG SQUAMOUS CELL CARCINOMA STAGE UNSPECIFIED
     Dosage: 60 MG/M2, UNK
  3. CYCLOPHOSPHAMIDE [Suspect]
     Indication: LUNG SQUAMOUS CELL CARCINOMA STAGE UNSPECIFIED
     Dosage: 400 MG/M2, UNK
  4. CEFTRIAXONE [Concomitant]
     Indication: URINARY TRACT INFECTION
     Dosage: 1 G, 1X/DAY
     Route: 042

REACTIONS (2)
  - HYPONATRAEMIA [None]
  - INAPPROPRIATE ANTIDIURETIC HORMONE SECRETION [None]
